FAERS Safety Report 12221423 (Version 4)
Quarter: 2016Q2

REPORT INFORMATION
  Report Type: Spontaneous
  Country: US (occurrence: US)
  Receive Date: 20160330
  Receipt Date: 20160524
  Transmission Date: 20160815
  Serious: Yes (Other)
  Sender: FDA-Public Use
  Company Number: US-GLAXOSMITHKLINE-US2016041689

PATIENT
  Age: 63 Year
  Sex: Female

DRUGS (1)
  1. REQUIP XL [Suspect]
     Active Substance: ROPINIROLE HYDROCHLORIDE
     Indication: PAIN IN EXTREMITY
     Dosage: 12 MG, QD
     Dates: start: 2006

REACTIONS (3)
  - Facial paralysis [Recovered/Resolved with Sequelae]
  - Skin hypertrophy [Recovered/Resolved]
  - Suture rupture [Not Recovered/Not Resolved]

NARRATIVE: CASE EVENT DATE: 201505
